FAERS Safety Report 19349546 (Version 5)
Quarter: 2021Q3

REPORT INFORMATION
  Report Type: Report from Study
  Country: None (occurrence: TR)
  Receive Date: 20210531
  Receipt Date: 20210720
  Transmission Date: 20211014
  Serious: Yes (Death, Hospitalization, Other)
  Sender: FDA-Public Use
  Company Number: TR-ABBVIE-21K-161-3925372-00

PATIENT
  Age: 71 Year
  Sex: Male
  Weight: 71 kg

DRUGS (8)
  1. OLMETEC [Concomitant]
     Active Substance: OLMESARTAN MEDOXOMIL
     Indication: HYPERTENSION
     Route: 048
  2. SARS?COV?2 VACCINE [Concomitant]
     Dosage: SECOND DOSE WAS ADMINISTERED.
     Route: 030
  3. DUODOPA [Suspect]
     Active Substance: CARBIDOPA\LEVODOPA
     Indication: PARKINSON^S DISEASE
     Dosage: MORNING DOSE 2 ML, CONTINUOUS DOSE 1.60 ML, EXTRA DOSE 1.00 ML
     Route: 050
     Dates: start: 20160531
  4. PK MERZ [Concomitant]
     Active Substance: AMANTADINE SULFATE
     Indication: PARKINSON^S DISEASE
     Route: 048
     Dates: start: 201605
  5. SARS?COV?2 VACCINE [Concomitant]
     Indication: COVID-19 IMMUNISATION
     Dosage: FIRST DOSE WAS ADMINISTERED.
     Route: 030
  6. DODEX [Concomitant]
     Active Substance: CYANOCOBALAMIN
     Indication: VITAMIN SUPPLEMENTATION
     Dosage: 1000 MCG/ML.?DODEX VIAL
     Route: 030
     Dates: start: 201810
  7. DUODOPA [Suspect]
     Active Substance: CARBIDOPA\LEVODOPA
  8. FOLBIOL [Concomitant]
     Active Substance: FOLIC ACID
     Indication: VITAMIN SUPPLEMENTATION
     Route: 048
     Dates: start: 201810

REACTIONS (5)
  - Dementia [Fatal]
  - Upper limb fracture [Recovered/Resolved]
  - Haematoma [Recovered/Resolved]
  - Peripheral swelling [Recovered/Resolved]
  - Fall [Recovered/Resolved]

NARRATIVE: CASE EVENT DATE: 20210523
